FAERS Safety Report 9918999 (Version 8)
Quarter: 2016Q2

REPORT INFORMATION
  Report Type: Spontaneous
  Country: US (occurrence: US)
  Receive Date: 20140224
  Receipt Date: 20160406
  Transmission Date: 20160815
  Serious: Yes (Hospitalization, Other)
  Sender: FDA-Public Use
  Company Number: US-009507513-1402USA008035

PATIENT
  Sex: Male
  Weight: 82.99 kg

DRUGS (5)
  1. FINASTERIDE. [Suspect]
     Active Substance: FINASTERIDE
     Indication: BENIGN PROSTATIC HYPERPLASIA
     Dosage: 5 MG, UNKNOWN
     Route: 048
     Dates: start: 20060626, end: 20081021
  2. PROSCAR [Suspect]
     Active Substance: FINASTERIDE
     Dosage: UNK, UNKNOWN
     Route: 048
     Dates: start: 20120328
  3. PROSCAR [Suspect]
     Active Substance: FINASTERIDE
     Indication: BENIGN PROSTATIC HYPERPLASIA
     Dosage: 5 MG, UNKNOWN
     Route: 048
     Dates: start: 1998, end: 2004
  4. PROSCAR [Suspect]
     Active Substance: FINASTERIDE
     Dosage: 5 MG, UNKNOWN
     Route: 048
     Dates: start: 20041104, end: 200606
  5. FLOMAX [Concomitant]
     Active Substance: TAMSULOSIN HYDROCHLORIDE
     Indication: BENIGN PROSTATIC HYPERPLASIA
     Dosage: 0.4 MG, UNKNOWN
     Route: 065
     Dates: start: 2004, end: 2008

REACTIONS (29)
  - Prostatectomy [Unknown]
  - Appetite disorder [Unknown]
  - Cystitis radiation [Not Recovered/Not Resolved]
  - Urethral stenosis [Unknown]
  - Surgery [Unknown]
  - Sexual dysfunction [Not Recovered/Not Resolved]
  - Pain [Unknown]
  - Abdominal pain [Unknown]
  - Back pain [Unknown]
  - Fatigue [Unknown]
  - Blood urine present [Unknown]
  - Gastrointestinal disorder [Unknown]
  - Abdominal pain lower [Unknown]
  - Prostate cancer recurrent [Unknown]
  - Haemorrhage urinary tract [Unknown]
  - Night sweats [Unknown]
  - Gynaecomastia [Unknown]
  - Libido decreased [Unknown]
  - Dysuria [Unknown]
  - Polycythaemia [Unknown]
  - Polycythaemia vera [Unknown]
  - Cataract [Unknown]
  - Organic erectile dysfunction [Recovering/Resolving]
  - Prostate cancer [Not Recovered/Not Resolved]
  - Haematuria [Unknown]
  - Insomnia [Not Recovered/Not Resolved]
  - Andropause [Unknown]
  - Urinary retention [Unknown]
  - Prostatic specific antigen increased [Unknown]

NARRATIVE: CASE EVENT DATE: 20040810
